FAERS Safety Report 5056074-0 (Version None)
Quarter: 2006Q3

REPORT INFORMATION
  Report Type: 
  Country: None (occurrence: None)
  Receive Date: 20060717
  Receipt Date: 20060706
  Transmission Date: 20061208
  Serious: Yes (Other)
  Sender: FDA-Public Use
  Company Number: 8017356

PATIENT
  Age: 47 Year
  Sex: Male

DRUGS (4)
  1. KEPPRA [Suspect]
     Indication: CONVULSION
     Dosage: 750 MG 2/D PO
     Route: 048
  2. KEPPRA [Suspect]
     Indication: CONVULSION
     Dosage: 1500 MG 2/D PO
     Route: 048
  3. MESALAMINE [Suspect]
     Indication: COLITIS
  4. CARBATROL [Concomitant]

REACTIONS (8)
  - ABSTAINS FROM ALCOHOL [None]
  - COLITIS [None]
  - CONVULSION [None]
  - DIABETES MELLITUS INADEQUATE CONTROL [None]
  - HAEMORRHAGE [None]
  - LIPIDS ABNORMAL [None]
  - METABOLIC DISORDER [None]
  - RASH [None]
